FAERS Safety Report 6717194-5 (Version None)
Quarter: 2010Q2

REPORT INFORMATION
  Report Type: 
  Country: None (occurrence: None)
  Receive Date: 20100510
  Receipt Date: 20100428
  Transmission Date: 20101027
  Serious: No
  Sender: FDA-Public Use
  Company Number: PHHY2010US15762

PATIENT
  Sex: Female
  Weight: 90.5 kg

DRUGS (3)
  1. FEMARA [Suspect]
     Indication: OVARIAN CANCER
     Dosage: 2.5 MG, QD
     Route: 048
     Dates: start: 20091020
  2. METOPROLOL [Concomitant]
     Indication: HYPERTENSION
     Dosage: 25 MG, QD
     Route: 048
     Dates: start: 20091201
  3. ALEVE (CAPLET) [Concomitant]
     Indication: ARTHRALGIA
     Dosage: 220 MG, UNK
     Route: 048
     Dates: start: 20100112

REACTIONS (3)
  - GROIN PAIN [None]
  - MUSCLE SPASMS [None]
  - POLLAKIURIA [None]
